FAERS Safety Report 20718986 (Version 1)
Quarter: 2022Q2

REPORT INFORMATION
  Report Type: Spontaneous
  Country: CA (occurrence: None)
  Receive Date: 20220418
  Receipt Date: 20220418
  Transmission Date: 20220721
  Serious: Yes (Death)
  Sender: FDA-Public Use
  Company Number: CA-ROCHE-3070160

PATIENT
  Sex: Male

DRUGS (13)
  1. ALECTINIB [Suspect]
     Active Substance: ALECTINIB
     Indication: Lung adenocarcinoma
     Dosage: 4.0 DOSAGE?FORMS
     Route: 048
  2. ATIVAN [Concomitant]
     Active Substance: LORAZEPAM
  3. CALCIUM\VITAMIN D [Concomitant]
     Active Substance: CALCIUM\VITAMIN D
  4. PERINDOPRIL [Concomitant]
     Active Substance: PERINDOPRIL
  5. DECADRON [Concomitant]
     Active Substance: DEXAMETHASONE
  6. ELAVIL [Concomitant]
     Active Substance: AMITRIPTYLINE HYDROCHLORIDE
  7. POLYETHYLENE GLYCOL 3350 [Concomitant]
     Active Substance: POLYETHYLENE GLYCOL 3350
     Dosage: POWDER SOLUTION
     Route: 048
  8. MESALAMINE [Concomitant]
     Active Substance: MESALAMINE
  9. MORPHINE [Concomitant]
     Active Substance: MORPHINE
  10. PANTOPRAZOLE SODIUM [Concomitant]
     Active Substance: PANTOPRAZOLE SODIUM
  11. PRAVACHOL [Concomitant]
     Active Substance: PRAVASTATIN SODIUM
  12. TYLENOL [Concomitant]
     Active Substance: ACETAMINOPHEN
  13. ZOMETA [Concomitant]
     Active Substance: ZOLEDRONIC ACID
     Route: 042

REACTIONS (3)
  - Acute respiratory distress syndrome [Fatal]
  - Intensive care [Fatal]
  - Pneumonitis [Fatal]
